FAERS Safety Report 11673902 (Version 4)
Quarter: 2015Q4

REPORT INFORMATION
  Report Type: Spontaneous
  Country: JP (occurrence: JP)
  Receive Date: 20151028
  Receipt Date: 20151105
  Transmission Date: 20160304
  Serious: Yes (Hospitalization, Other)
  Sender: FDA-Public Use
  Company Number: JP-ACTAVIS-2015-19384

PATIENT
  Age: 31 Year
  Sex: Male

DRUGS (2)
  1. ACETAZOLAMIDE (WATSON LABORATORIES) [Suspect]
     Active Substance: ACETAZOLAMIDE
     Indication: GLYCOGEN STORAGE DISEASE TYPE IV
     Dosage: 375 MG, DAILY
     Route: 065
  2. SPIRONOLACTONE (UNKNOWN) [Suspect]
     Active Substance: SPIRONOLACTONE
     Indication: PRODUCT USED FOR UNKNOWN INDICATION
     Dosage: UNK
     Route: 048

REACTIONS (2)
  - Condition aggravated [Unknown]
  - Glycogen storage disease type IV [Unknown]
